FAERS Safety Report 4657416-8 (Version None)
Quarter: 2005Q2

REPORT INFORMATION
  Report Type: 
  Country: None (occurrence: None)
  Receive Date: 20050510
  Receipt Date: 20050428
  Transmission Date: 20051028
  Serious: Yes (Hospitalization)
  Sender: FDA-Public Use
  Company Number: JP-JNJFOC-20050307300

PATIENT
  Sex: Female
  Weight: 63 kg

DRUGS (10)
  1. REMICADE [Suspect]
     Route: 042
  2. REMICADE [Suspect]
     Route: 042
  3. REMICADE [Suspect]
     Route: 042
  4. REMICADE [Suspect]
     Indication: RHEUMATOID ARTHRITIS
     Route: 042
  5. METHOTREXATE [Suspect]
     Route: 049
  6. METHOTREXATE [Suspect]
     Route: 049
  7. METHOTREXATE [Suspect]
     Route: 049
  8. INH [Concomitant]
     Indication: TUBERCULOSIS PROPHYLAXIS
     Route: 049
  9. TEPRENONE [Concomitant]
     Route: 049
  10. DICLOFENAC SODIUM [Concomitant]
     Route: 049

REACTIONS (2)
  - CYTOMEGALOVIRUS INFECTION [None]
  - INTERSTITIAL LUNG DISEASE [None]
